FAERS Safety Report 22333606 (Version 2)
Quarter: 2023Q2

REPORT INFORMATION
  Report Type: Report from Study
  Country: US (occurrence: US)
  Receive Date: 20230517
  Receipt Date: 20230519
  Transmission Date: 20230721
  Serious: Yes (Death, Life-Threatening, Other)
  Sender: FDA-Public Use
  Company Number: US-GILEAD-2023-0628126

PATIENT
  Age: 54 Year
  Sex: Female
  Weight: 91.5 kg

DRUGS (6)
  1. BREXUCABTAGENE AUTOLEUCEL [Suspect]
     Active Substance: BREXUCABTAGENE AUTOLEUCEL
     Indication: Acute lymphocytic leukaemia recurrent
     Dosage: 68
     Route: 042
     Dates: start: 20230421, end: 20230421
  2. FLUDARABINE [Concomitant]
     Active Substance: FLUDARABINE PHOSPHATE
     Indication: Bone marrow conditioning regimen
     Dosage: UNK
     Route: 042
     Dates: start: 20230413, end: 20230415
  3. CYTOXAN [Concomitant]
     Active Substance: CYCLOPHOSPHAMIDE
     Indication: Bone marrow conditioning regimen
     Dosage: UNK
     Route: 042
     Dates: start: 20230413, end: 20230415
  4. DEXAMETHASONE [Concomitant]
     Active Substance: DEXAMETHASONE
  5. TOCILIZUMAB [Concomitant]
     Active Substance: TOCILIZUMAB
  6. ANAKINRA [Concomitant]
     Active Substance: ANAKINRA

REACTIONS (4)
  - Septic shock [Fatal]
  - Hepatic failure [Not Recovered/Not Resolved]
  - Acute kidney injury [Not Recovered/Not Resolved]
  - Respiratory failure [Not Recovered/Not Resolved]

NARRATIVE: CASE EVENT DATE: 20230507
